FAERS Safety Report 6129837-8 (Version None)
Quarter: 2009Q1

REPORT INFORMATION
  Report Type: 
  Country: None (occurrence: None)
  Receive Date: 20090324
  Receipt Date: 20090324
  Transmission Date: 20090719
  Serious: Yes (Disabling)
  Sender: FDA-Public Use
  Company Number: PHHO2005AU06430

PATIENT
  Sex: Female
  Weight: 48 kg

DRUGS (2)
  1. CGS 20267 T30748+ [Suspect]
     Indication: BREAST CANCER
     Dosage: 2.5 MG, QD
     Route: 048
     Dates: start: 19990311
  2. RENITEC [Concomitant]
     Indication: HYPERTENSION
     Dates: start: 19990201

REACTIONS (4)
  - CLAVICLE FRACTURE [None]
  - FALL [None]
  - LIMB IMMOBILISATION [None]
  - OSTEOPOROSIS [None]
